FAERS Safety Report 7209676-7 (Version None)
Quarter: 2011Q1

REPORT INFORMATION
  Report Type: 
  Country: None (occurrence: None)
  Receive Date: 20110104
  Receipt Date: 20101227
  Transmission Date: 20110831
  Serious: Yes (Other)
  Sender: FDA-Public Use
  Company Number: BR-PFIZER INC-2010175393

PATIENT
  Age: 50 Year
  Sex: Male
  Weight: 108 kg

DRUGS (3)
  1. CAVERJECT [Suspect]
     Indication: ERECTILE DYSFUNCTION
     Dosage: 10 UG, AS NEEDED
     Route: 017
     Dates: start: 20060101
  2. VIAGRA [Suspect]
     Dosage: 100 MG, UNK
  3. VIAGRA [Suspect]
     Indication: ERECTILE DYSFUNCTION
     Dosage: 50 MG, UNK

REACTIONS (6)
  - ANGER [None]
  - NERVOUSNESS [None]
  - DRUG INEFFECTIVE [None]
  - PAIN [None]
  - ERECTION INCREASED [None]
  - INSOMNIA [None]
